FAERS Safety Report 7472951-5 (Version None)
Quarter: 2011Q1

REPORT INFORMATION
  Report Type: 
  Country: None (occurrence: None)
  Receive Date: 20110302
  Receipt Date: 20101214
  Transmission Date: 20110831
  Serious: Yes (Hospitalization, Disabling, Other)
  Sender: FDA-Public Use
  Company Number: 163-21880-10112606

PATIENT
  Age: 84 Year
  Sex: Male
  Weight: 89.3586 kg

DRUGS (13)
  1. REVLIMID [Suspect]
     Indication: MULTIPLE MYELOMA
     Dosage: 15 MG, QD X 21 DAYS, PO; 10 MG, QD X 21 DAYS, PO
     Route: 048
     Dates: start: 20100126, end: 20100101
  2. REVLIMID [Suspect]
     Indication: MULTIPLE MYELOMA
     Dosage: 15 MG, QD X 21 DAYS, PO; 10 MG, QD X 21 DAYS, PO
     Route: 048
     Dates: start: 20100310, end: 20100820
  3. COREG [Concomitant]
  4. NORCO [Concomitant]
  5. DEXAMETHASONE [Suspect]
     Indication: MULTIPLE MYELOMA
     Dosage: 16 MG, DAILY ON D 1,8,15, + 22, PO
     Route: 048
     Dates: start: 20100310, end: 20100820
  6. TRANSFUSION (BLOOD AND RELATED PRODUCTS) [Concomitant]
  7. PRILOSEC [Concomitant]
  8. LASIX [Concomitant]
  9. VITAMIN D [Concomitant]
  10. METFORMIN HCL (METFORMIN HYDROCHLORIDE) [Concomitant]
  11. ASPIRIN [Concomitant]
  12. CRESTOR [Concomitant]
  13. POTASSIUM CHLORIDE [Concomitant]

REACTIONS (7)
  - THROMBOCYTOPENIA [None]
  - DEEP VEIN THROMBOSIS [None]
  - BLOOD GLUCOSE INCREASED [None]
  - MALAISE [None]
  - PULMONARY EMBOLISM [None]
  - MACROCYTOSIS [None]
  - ANAEMIA [None]
